FAERS Safety Report 25023846 (Version 1)
Quarter: 2025Q1

REPORT INFORMATION
  Report Type: Spontaneous
  Country: DE (occurrence: DE)
  Receive Date: 20250228
  Receipt Date: 20250228
  Transmission Date: 20250408
  Serious: Yes (Other)
  Sender: AUROBINDO
  Company Number: DE-BESINS-2025-00426

PATIENT
  Age: 67 Year
  Sex: Female
  Weight: 80 kg

DRUGS (6)
  1. ROSUVASTATIN [Suspect]
     Active Substance: ROSUVASTATIN
     Indication: Product used for unknown indication
     Route: 065
  2. PROGESTERONE [Suspect]
     Active Substance: PROGESTERONE
     Indication: Menopausal symptoms
     Route: 067
  3. PROGESTERONE [Suspect]
     Active Substance: PROGESTERONE
     Route: 067
  4. ESTRADIOL [Suspect]
     Active Substance: ESTRADIOL
     Indication: Menopausal symptoms
     Route: 065
  5. ESTRADIOL [Suspect]
     Active Substance: ESTRADIOL
     Route: 065
  6. ESTRADIOL [Suspect]
     Active Substance: ESTRADIOL
     Route: 065

REACTIONS (10)
  - Postmenopausal haemorrhage [Unknown]
  - Alopecia [Unknown]
  - Skin wrinkling [Unknown]
  - Hair growth abnormal [Unknown]
  - Endometrial thickening [Unknown]
  - Therapeutic product effect decreased [Unknown]
  - Product use issue [Unknown]
  - Underdose [Unknown]
  - Wrong technique in product usage process [Unknown]
  - Intentional product use issue [Unknown]
